FAERS Safety Report 4741633-2 (Version None)
Quarter: 2005Q3

REPORT INFORMATION
  Report Type: 
  Country: None (occurrence: None)
  Receive Date: 20050808
  Receipt Date: 20050727
  Transmission Date: 20060218
  Serious: Yes (Other)
  Sender: FDA-Public Use
  Company Number: AU_050708736

PATIENT
  Age: 15 Year
  Sex: Female

DRUGS (1)
  1. CEFACLOR [Suspect]
     Dates: start: 20050101

REACTIONS (7)
  - ANAPHYLACTIC REACTION [None]
  - DIZZINESS [None]
  - EAR PRURITUS [None]
  - FLUSHING [None]
  - MALAISE [None]
  - SWELLING FACE [None]
  - URTICARIA [None]
